FAERS Safety Report 7087114-5 (Version None)
Quarter: 2010Q4

REPORT INFORMATION
  Report Type: 
  Country: None (occurrence: None)
  Receive Date: 20101106
  Receipt Date: 20101025
  Transmission Date: 20110411
  Serious: No
  Sender: FDA-Public Use
  Company Number: US-WYE-H18344310

PATIENT
  Age: 55 Year
  Sex: Male
  Weight: 98.97 kg

DRUGS (4)
  1. EFFEXOR [Suspect]
     Indication: DEPRESSION
     Route: 048
     Dates: start: 20100801
  2. IBUPROFEN [Concomitant]
  3. LISINOPRIL [Concomitant]
  4. AVODART [Concomitant]

REACTIONS (4)
  - EJACULATION DISORDER [None]
  - ERECTILE DYSFUNCTION [None]
  - SEMEN VOLUME DECREASED [None]
  - SEXUAL DYSFUNCTION [None]
